FAERS Safety Report 6689812-1 (Version None)
Quarter: 2010Q2

REPORT INFORMATION
  Report Type: 
  Country: None (occurrence: None)
  Receive Date: 20100421
  Receipt Date: 20100415
  Transmission Date: 20101027
  Serious: Yes (Hospitalization)
  Sender: FDA-Public Use
  Company Number: JP-ABBOTT-10P-087-0633958-00

PATIENT
  Age: 38 Year
  Sex: Male

DRUGS (1)
  1. CLARITH TAB [Suspect]
     Indication: DRUG USE FOR UNKNOWN INDICATION
     Route: 048
     Dates: start: 20090801, end: 20090801

REACTIONS (1)
  - LIVER DISORDER [None]
